FAERS Safety Report 7371134-7 (Version None)
Quarter: 2011Q1

REPORT INFORMATION
  Report Type: 
  Country: None (occurrence: None)
  Receive Date: 20110322
  Receipt Date: 20110322
  Transmission Date: 20110831
  Serious: Yes (Disabling)
  Sender: FDA-Public Use
  Company Number: None

PATIENT
  Age: 47 Year
  Sex: Female
  Weight: 58.0604 kg

DRUGS (1)
  1. EPIPEN [Suspect]
     Indication: HYPERSENSITIVITY
     Dosage: 1 DOSE ONCE OTHER
     Route: 050
     Dates: start: 20110318, end: 20110318

REACTIONS (2)
  - INJURY ASSOCIATED WITH DEVICE [None]
  - MEDICATION ERROR [None]
